FAERS Safety Report 21917659 (Version 1)
Quarter: 2023Q1

REPORT INFORMATION
  Report Type: Report from Study
  Country: US (occurrence: US)
  Receive Date: 20230127
  Receipt Date: 20230127
  Transmission Date: 20230417
  Serious: Yes (Other)
  Sender: FDA-Public Use
  Company Number: US-UCBSA-2022063494

PATIENT
  Age: 10 Year
  Sex: Male
  Weight: 28.5 kg

DRUGS (6)
  1. FINTEPLA [Suspect]
     Active Substance: FENFLURAMINE
     Indication: Product used for unknown indication
     Dosage: 3.7 MILLILITER, 2X/DAY (BID)
  2. FINTEPLA [Suspect]
     Active Substance: FENFLURAMINE
     Dosage: 0.57 MILLIGRAM/KILOGRAM
  3. FINTEPLA [Suspect]
     Active Substance: FENFLURAMINE
     Dosage: 3.7 MILLILITER (MOUTH TWICE A DAY)
  4. FINTEPLA [Suspect]
     Active Substance: FENFLURAMINE
     Dosage: 0.2 MILLIGRAM/KILOGRAM
  5. FINTEPLA [Suspect]
     Active Substance: FENFLURAMINE
     Dosage: 0.65 MILLIGRAM/KILOGRAM
  6. FINTEPLA [Suspect]
     Active Substance: FENFLURAMINE
     Dosage: 0.7 MILLIGRAM/KILOGRAM

REACTIONS (2)
  - Deep brain stimulation [Not Recovered/Not Resolved]
  - Echocardiogram abnormal [Not Recovered/Not Resolved]

NARRATIVE: CASE EVENT DATE: 20220901
